FAERS Safety Report 18218736 (Version 1)
Quarter: 2020Q3

REPORT INFORMATION
  Report Type: Spontaneous
  Country: DE (occurrence: DE)
  Receive Date: 20200901
  Receipt Date: 20200901
  Transmission Date: 20201103
  Serious: Yes (Other)
  Sender: FDA-Public Use
  Company Number: DE-CIRCASSIA PHARMACEUTICALS INC-2020DE004877

PATIENT

DRUGS (7)
  1. BEROTEC [Concomitant]
     Active Substance: FENOTEROL HYDROBROMIDE
     Indication: CHRONIC OBSTRUCTIVE PULMONARY DISEASE
     Dosage: UNK
     Route: 055
  2. VIANI [Concomitant]
     Active Substance: FLUTICASONE PROPIONATE\SALMETEROL XINAFOATE
     Indication: CHRONIC OBSTRUCTIVE PULMONARY DISEASE
     Dosage: UNK
     Route: 055
  3. BRETARIS [Suspect]
     Active Substance: ACLIDINIUM BROMIDE
     Dosage: 322 UG, BID
     Route: 055
     Dates: start: 20200810, end: 20200820
  4. PREDNISOLONE. [Concomitant]
     Active Substance: PREDNISOLONE
     Indication: DYSPNOEA
     Dosage: 40 MG, DAILY
     Route: 048
     Dates: start: 20200821
  5. BRETARIS [Suspect]
     Active Substance: ACLIDINIUM BROMIDE
     Indication: CHRONIC OBSTRUCTIVE PULMONARY DISEASE
     Dosage: 322 UG, BID
     Route: 055
     Dates: start: 20200723, end: 20200726
  6. TORASEMIDE [Concomitant]
     Active Substance: TORSEMIDE
     Indication: OEDEMA
     Dosage: UNK
     Route: 048
  7. CANDESARTAN. [Concomitant]
     Active Substance: CANDESARTAN
     Indication: CARDIAC FAILURE
     Dosage: 16 MG, DAILY
     Route: 048

REACTIONS (6)
  - Vision blurred [Unknown]
  - Dyspnoea [Unknown]
  - Eye swelling [Unknown]
  - Fluid retention [Unknown]
  - Rash pruritic [Unknown]
  - Headache [Unknown]
